FAERS Safety Report 7271940-3 (Version None)
Quarter: 2011Q1

REPORT INFORMATION
  Report Type: 
  Country: None (occurrence: None)
  Receive Date: 20110126
  Receipt Date: 20110110
  Transmission Date: 20110831
  Serious: Yes (Hospitalization, Other)
  Sender: FDA-Public Use
  Company Number: 1000018220

PATIENT
  Sex: Female

DRUGS (1)
  1. CITALOPRAM(CITALOPRAM HYDROBROMIDE) [Suspect]

REACTIONS (7)
  - DIZZINESS [None]
  - RESPIRATORY RATE INCREASED [None]
  - TETANY [None]
  - ALKALOSIS [None]
  - HYPOCALCAEMIA [None]
  - HYPOKALAEMIA [None]
  - CONVULSION [None]
